FAERS Safety Report 22921750 (Version 5)
Quarter: 2024Q1

REPORT INFORMATION
  Report Type: Spontaneous
  Country: CA (occurrence: CA)
  Receive Date: 20230908
  Receipt Date: 20240110
  Transmission Date: 20240409
  Serious: Yes (Other)
  Sender: FDA-Public Use
  Company Number: CA-CELLTRION INC.-2023CA017565

PATIENT

DRUGS (1)
  1. INFLECTRA [Suspect]
     Active Substance: INFLIXIMAB-DYYB
     Indication: Crohn^s disease
     Dosage: 300 MG, WEEK 6 (INDUCTION WEEK 0, 2 (BOTH RECEIVED IN HOSPITAL), 6 THEN EVERY 8 WEEKS FOR 12 MONTHS)
     Route: 042
     Dates: start: 20230810

REACTIONS (5)
  - Condition aggravated [Unknown]
  - Condition aggravated [Unknown]
  - Decubitus ulcer [Unknown]
  - Asthenia [Unknown]
  - Mobility decreased [Unknown]

NARRATIVE: CASE EVENT DATE: 20230101
